FAERS Safety Report 12750361 (Version 1)
Quarter: 2016Q3

REPORT INFORMATION
  Report Type: Spontaneous
  Country: US (occurrence: US)
  Receive Date: 20160916
  Receipt Date: 20160916
  Transmission Date: 20161109
  Serious: No
  Sender: FDA-Public Use
  Company Number: US-BEH-2016073489

PATIENT
  Age: 58 Year
  Sex: Female
  Weight: 33.92 kg

DRUGS (17)
  1. CALCIUM [Concomitant]
     Active Substance: CALCIUM
  2. ASPIRIN (E.C.) [Concomitant]
     Active Substance: ASPIRIN
  3. PROAIR HFA [Concomitant]
     Active Substance: ALBUTEROL SULFATE
  4. HIZENTRA [Suspect]
     Active Substance: HUMAN IMMUNOGLOBULIN G
     Indication: IMMUNODEFICIENCY COMMON VARIABLE
     Dosage: 15 G, QOW
     Route: 058
     Dates: start: 20140515
  5. JANUVIA [Concomitant]
     Active Substance: SITAGLIPTIN PHOSPHATE
  6. METFORMIN [Concomitant]
     Active Substance: METFORMIN HYDROCHLORIDE
  7. DEXILANT [Concomitant]
     Active Substance: DEXLANSOPRAZOLE
  8. DULERA [Concomitant]
     Active Substance: FORMOTEROL FUMARATE DIHYDRATE\MOMETASONE FUROATE
  9. LISINOPRIL. [Concomitant]
     Active Substance: LISINOPRIL
  10. ACETAMINOPHEN. [Concomitant]
     Active Substance: ACETAMINOPHEN
  11. EPIPEN [Concomitant]
     Active Substance: EPINEPHRINE
  12. ADVIL (MEFENAMIC ACID) [Concomitant]
     Active Substance: MEFENAMIC ACID
  13. MULTIVITAMIN                       /00097801/ [Concomitant]
     Active Substance: VITAMINS
  14. GLIMEPIRIDE. [Concomitant]
     Active Substance: GLIMEPIRIDE
  15. LORATADINE. [Concomitant]
     Active Substance: LORATADINE
  16. AMLODIPINE BESYLATE. [Concomitant]
     Active Substance: AMLODIPINE BESYLATE
  17. DIPHENHYDRAMINE. [Concomitant]
     Active Substance: DIPHENHYDRAMINE

REACTIONS (1)
  - Granuloma [Unknown]

NARRATIVE: CASE EVENT DATE: 20160914
